FAERS Safety Report 14720432 (Version 2)
Quarter: 2018Q2

REPORT INFORMATION
  Report Type: Spontaneous
  Country: JP (occurrence: JP)
  Receive Date: 20180405
  Receipt Date: 20180417
  Transmission Date: 20180711
  Serious: Yes (Other)
  Sender: FDA-Public Use
  Company Number: JP-JNJFOC-20180400742

PATIENT
  Sex: Male

DRUGS (4)
  1. SWORD [Concomitant]
     Active Substance: PRULIFLOXACIN
     Route: 048
  2. CARBOCISTEINE [Concomitant]
     Active Substance: CARBOCYSTEINE
     Route: 048
  3. ONON [Concomitant]
     Active Substance: PRANLUKAST
     Route: 048
  4. METHYLPHENIDATE HYDROCHLORIDE. [Suspect]
     Active Substance: METHYLPHENIDATE HYDROCHLORIDE
     Indication: ATTENTION DEFICIT/HYPERACTIVITY DISORDER
     Route: 048
     Dates: start: 20180328, end: 20180328

REACTIONS (8)
  - Feeling abnormal [Unknown]
  - Visual impairment [Unknown]
  - Fatigue [Unknown]
  - Euphoric mood [Unknown]
  - Palpitations [Unknown]
  - Blood pressure increased [Unknown]
  - Tachycardia [Unknown]
  - Altered state of consciousness [Unknown]

NARRATIVE: CASE EVENT DATE: 20180328
